FAERS Safety Report 24936620 (Version 1)
Quarter: 2025Q1

REPORT INFORMATION
  Report Type: Spontaneous
  Country: FR (occurrence: FR)
  Receive Date: 20250206
  Receipt Date: 20250206
  Transmission Date: 20250408
  Serious: Yes (Death, Hospitalization)
  Sender: BEIGENE
  Company Number: FR-BEIGENE-BGN-2024-014792

PATIENT
  Age: 79 Year

DRUGS (7)
  1. BRUKINSA [Suspect]
     Active Substance: ZANUBRUTINIB
     Indication: Marginal zone lymphoma
  2. BACTRIM [Concomitant]
     Active Substance: SULFAMETHOXAZOLE\TRIMETHOPRIM
  3. VALACYCLOVIR HYDROCHLORIDE [Concomitant]
     Active Substance: VALACYCLOVIR HYDROCHLORIDE
     Dosage: 500 MILLIGRAM, BID
  4. CILASTATIN SODIUM\IMIPENEM [Concomitant]
     Active Substance: CILASTATIN SODIUM\IMIPENEM
  5. LEVOFLOXACIN [Concomitant]
     Active Substance: LEVOFLOXACIN
  6. SPIRAMYCIN [Concomitant]
     Active Substance: SPIRAMYCIN
  7. ZERBAXA [Concomitant]
     Active Substance: CEFTOLOZANE SULFATE\TAZOBACTAM SODIUM

REACTIONS (11)
  - Toxic epidermal necrolysis [Fatal]
  - Cell death [Unknown]
  - Transaminases increased [Unknown]
  - Fatigue [Unknown]
  - Liver function test abnormal [Unknown]
  - Septic shock [Unknown]
  - Pneumonia [Unknown]
  - Rash erythematous [Unknown]
  - Lichenoid keratosis [Unknown]
  - Oral lichenoid reaction [Unknown]
  - Hypersensitivity [Unknown]
